FAERS Safety Report 9644940 (Version 2)
Quarter: 2013Q4

REPORT INFORMATION
  Report Type: Spontaneous
  Country: US (occurrence: US)
  Receive Date: 20131025
  Receipt Date: 20131119
  Transmission Date: 20140711
  Serious: No
  Sender: FDA-Public Use
  Company Number: US-PFIZER INC-2013303356

PATIENT
  Age: 46 Year
  Sex: Female
  Weight: 88.89 kg

DRUGS (3)
  1. LYRICA [Suspect]
     Indication: NEURALGIA
     Dosage: 75 MG, 2X/DAY
  2. LYRICA [Suspect]
     Indication: PAIN IN EXTREMITY
  3. PANTOPRAZOLE SODIUM [Concomitant]
     Indication: GASTRITIS
     Dosage: UNK

REACTIONS (4)
  - Off label use [Unknown]
  - Local swelling [Unknown]
  - Weight increased [Unknown]
  - Drug ineffective for unapproved indication [Unknown]
